FAERS Safety Report 8542297-2 (Version None)
Quarter: 2012Q3

REPORT INFORMATION
  Report Type: 
  Country: None (occurrence: None)
  Receive Date: 20120726
  Receipt Date: 20120723
  Transmission Date: 20120928
  Serious: No
  Sender: FDA-Public Use
  Company Number: US-PFIZER INC-2012178602

PATIENT
  Sex: Female
  Weight: 79.365 kg

DRUGS (4)
  1. PREMARIN [Suspect]
     Indication: HORMONE REPLACEMENT THERAPY
     Dosage: 1 MG, 2X/WEEK
     Route: 067
  2. XANAX [Concomitant]
     Indication: NERVOUSNESS
     Dosage: 1 MG, 2X/DAY
  3. WELLBUTRIN [Concomitant]
     Indication: DEPRESSION
     Dosage: 200 MG, 2X/DAY
  4. ESTRADIOL [Concomitant]
     Indication: HORMONE REPLACEMENT THERAPY
     Dosage: 2 MG, DAILY

REACTIONS (4)
  - EXPIRED DRUG ADMINISTERED [None]
  - BACTERIAL INFECTION [None]
  - PRODUCT PHYSICAL ISSUE [None]
  - VULVOVAGINAL DISCOMFORT [None]
